FAERS Safety Report 15631947 (Version 1)
Quarter: 2018Q4

REPORT INFORMATION
  Report Type: Spontaneous
  Country: US (occurrence: US)
  Receive Date: 20181119
  Receipt Date: 20181119
  Transmission Date: 20190205
  Serious: Yes (Hospitalization, Other)
  Sender: FDA-Public Use
  Company Number: US-LUPIN PHARMACEUTICALS INC.-2018-07936

PATIENT
  Age: 16 Year
  Sex: Female

DRUGS (1)
  1. HYDROXYCHLOROQUINE SULFATE TABLETS USP, 200 MG [Suspect]
     Active Substance: HYDROXYCHLOROQUINE SULFATE
     Indication: SUICIDE ATTEMPT
     Dosage: 45 DF, SINGLE
     Route: 048

REACTIONS (5)
  - Hypotension [Recovered/Resolved]
  - Arrhythmia [Recovered/Resolved]
  - Intentional overdose [Unknown]
  - Pulse absent [Recovered/Resolved]
  - Toxicity to various agents [Recovered/Resolved]
